FAERS Safety Report 10270686 (Version 1)
Quarter: 2014Q3

REPORT INFORMATION
  Report Type: Spontaneous
  Country: US (occurrence: US)
  Receive Date: 20140701
  Receipt Date: 20140701
  Transmission Date: 20150326
  Serious: Yes (Hospitalization)
  Sender: FDA-Public Use
  Company Number: US-GLAXOSMITHKLINE-A1078927A

PATIENT
  Age: 81 Year
  Sex: Female

DRUGS (3)
  1. INTRAVENOUS DRIP [Concomitant]
     Route: 042
  2. NICORETTE [Suspect]
     Active Substance: NICOTINE
     Indication: SMOKING CESSATION THERAPY
     Route: 002
  3. UNSPECIFIED MEDICATIONS [Suspect]
     Active Substance: UNSPECIFIED INGREDIENT

REACTIONS (6)
  - Nausea [Not Recovered/Not Resolved]
  - Pneumonia [Unknown]
  - Nicotine dependence [Not Recovered/Not Resolved]
  - Hip fracture [Unknown]
  - Agitation [Unknown]
  - Constipation [Not Recovered/Not Resolved]

NARRATIVE: CASE EVENT DATE: 2009
